FAERS Safety Report 21110186 (Version 1)
Quarter: 2022Q3

REPORT INFORMATION
  Report Type: Spontaneous
  Country: US (occurrence: None)
  Receive Date: 20220720
  Receipt Date: 20220720
  Transmission Date: 20221026
  Serious: No
  Sender: FDA-Public Use
  Company Number: None

PATIENT
  Sex: Male

DRUGS (1)
  1. HUMIRA [Suspect]
     Active Substance: ADALIMUMAB
     Indication: Juvenile idiopathic arthritis
     Dosage: 40 MG/0.4 ML EVERY 14 DAYS SUBCUTANEOUS? ?
     Route: 058
     Dates: start: 20220712

REACTIONS (2)
  - Wrong technique in product usage process [None]
  - Product dose omission issue [None]
